FAERS Safety Report 8922602 (Version 1)
Quarter: 2012Q4

REPORT INFORMATION
  Report Type: 
  Country: US (occurrence: US)
  Receive Date: 20121123
  Receipt Date: 20121123
  Transmission Date: 20130627
  Serious: No
  Sender: FDA-Public Use
  Company Number: US-PFIZER INC-2012290819

PATIENT
  Age: 11 Year
  Sex: Male

DRUGS (4)
  1. ZOLOFT [Suspect]
     Indication: ANXIETY
     Dosage: UNK, 1x/day
     Dates: start: 201201
  2. KAPVAY [Suspect]
     Indication: ADHD
     Dosage: 0.2 mg, 2x/day
  3. CONCERTA [Suspect]
     Indication: ADHD
     Dosage: UNK, 1x/day
     Dates: start: 201201
  4. SEROQUEL [Suspect]
     Indication: ANXIETY
     Dosage: UNK, 1x/day
     Dates: start: 201201

REACTIONS (2)
  - Tremor [Recovered/Resolved]
  - Medication error [Unknown]
